FAERS Safety Report 9808140 (Version 2)
Quarter: 2014Q1

REPORT INFORMATION
  Report Type: Report from Study
  Country: US (occurrence: US)
  Receive Date: 20140110
  Receipt Date: 20140317
  Transmission Date: 20141002
  Serious: Yes (Hospitalization, Other)
  Sender: FDA-Public Use
  Company Number: US-JNJFOC-20140102062

PATIENT
  Age: 57 Year
  Sex: Male

DRUGS (7)
  1. REMICADE [Suspect]
     Indication: CROHN^S DISEASE
     Route: 042
     Dates: start: 20131218, end: 2013
  2. PROPRANOLOL [Concomitant]
     Indication: HYPERTENSION
     Route: 065
  3. TESTOSTERONE CYPIONATE [Concomitant]
     Indication: BLOOD TESTOSTERONE DECREASED
     Route: 065
  4. AMBIEN [Concomitant]
     Indication: SLEEP DISORDER THERAPY
     Route: 065
  5. PANTOPRAZOLE [Concomitant]
     Indication: ULCER
     Route: 065
  6. VITAMIN D [Concomitant]
     Indication: NUTRITIONAL SUPPLEMENTATION
     Route: 065
  7. TRAMADOL [Concomitant]
     Indication: PAIN
     Route: 065

REACTIONS (5)
  - Cardiomegaly [Recovering/Resolving]
  - Loss of consciousness [Recovered/Resolved]
  - Thrombosis [Recovering/Resolving]
  - Pulmonary thrombosis [Recovering/Resolving]
  - Muscular weakness [Recovering/Resolving]
